FAERS Safety Report 9540796 (Version 1)
Quarter: 2013Q3

REPORT INFORMATION
  Report Type: Spontaneous
  Country: CO (occurrence: CO)
  Receive Date: 20130920
  Receipt Date: 20130920
  Transmission Date: 20140515
  Serious: Yes (Death)
  Sender: FDA-Public Use
  Company Number: CO-PFIZER INC-2013271345

PATIENT
  Age: 76 Year
  Sex: Female

DRUGS (3)
  1. LYRICA [Suspect]
     Indication: PAIN
     Dosage: 75 MG, 1X/DAY
     Route: 048
     Dates: start: 201302
  2. ALEVIAN DUO [Concomitant]
     Indication: GASTROINTESTINAL CARCINOMA
     Dosage: 350 MG, 2X/DAY
     Route: 048
     Dates: start: 201302
  3. AMITRIPTYLINE [Concomitant]
     Indication: FEELING OF RELAXATION
     Dosage: UNK
     Route: 048
     Dates: start: 201302

REACTIONS (2)
  - Gastrointestinal carcinoma [Fatal]
  - Off label use [Unknown]
